FAERS Safety Report 7098916-3 (Version None)
Quarter: 2010Q4

REPORT INFORMATION
  Report Type: 
  Country: None (occurrence: None)
  Receive Date: 20101112
  Receipt Date: 20101028
  Transmission Date: 20110411
  Serious: Yes (Hospitalization)
  Sender: FDA-Public Use
  Company Number: US-BAYER-201028250NA

PATIENT
  Age: 33 Year
  Sex: Female

DRUGS (1)
  1. MIRENA [Suspect]
     Indication: PRODUCT USED FOR UNKNOWN INDICATION
     Dosage: FREQUENCY: CONTINUOUS
     Route: 015
     Dates: end: 20080813

REACTIONS (19)
  - ABDOMINAL PAIN [None]
  - ABDOMINAL TENDERNESS [None]
  - CHEST DISCOMFORT [None]
  - CHEST PAIN [None]
  - DERMATITIS ALLERGIC [None]
  - DIZZINESS [None]
  - DYSPAREUNIA [None]
  - DYSPNOEA [None]
  - GALACTORRHOEA [None]
  - HEADACHE [None]
  - HYPOAESTHESIA [None]
  - LIP SWELLING [None]
  - MENORRHAGIA [None]
  - MOOD ALTERED [None]
  - PAIN IN EXTREMITY [None]
  - PELVIC PAIN [None]
  - PRURITUS [None]
  - RASH [None]
  - URTICARIA [None]
